FAERS Safety Report 7232560-X (Version None)
Quarter: 2011Q1

REPORT INFORMATION
  Report Type: 
  Country: None (occurrence: None)
  Receive Date: 20110106
  Receipt Date: 20101207
  Transmission Date: 20110831
  Serious: Yes (Hospitalization, Disabling, Other)
  Sender: FDA-Public Use
  Company Number: ALA_01453_2011

PATIENT
  Sex: Female

DRUGS (2)
  1. REGLAN [Suspect]
     Indication: IMPAIRED GASTRIC EMPTYING
     Dosage: (10 MG TID ORAL)
     Route: 048
     Dates: start: 20061201, end: 20081101
  2. REGLAN [Suspect]
     Indication: IMPAIRED GASTRIC EMPTYING
     Dosage: (10 MG TID ORAL)
     Route: 048
     Dates: start: 20040501, end: 20041001

REACTIONS (22)
  - RESPIRATORY DYSKINESIA [None]
  - AKATHISIA [None]
  - MUSCLE SPASTICITY [None]
  - BRADYKINESIA [None]
  - MENTAL DISORDER [None]
  - EXTRAPYRAMIDAL DISORDER [None]
  - PROTRUSION TONGUE [None]
  - PAIN [None]
  - NERVOUS SYSTEM DISORDER [None]
  - TARDIVE DYSKINESIA [None]
  - TREMOR [None]
  - DYSKINESIA [None]
  - ECONOMIC PROBLEM [None]
  - SPEECH DISORDER [None]
  - EMOTIONAL DISTRESS [None]
  - MULTIPLE INJURIES [None]
  - TRISMUS [None]
  - STEREOTYPY [None]
  - ACTIVITIES OF DAILY LIVING IMPAIRED [None]
  - QUALITY OF LIFE DECREASED [None]
  - DYSTONIA [None]
  - COGWHEEL RIGIDITY [None]
